FAERS Safety Report 8520059-X (Version None)
Quarter: 2012Q3

REPORT INFORMATION
  Report Type: 
  Country: None (occurrence: None)
  Receive Date: 20120719
  Receipt Date: 20120710
  Transmission Date: 20120928
  Serious: Yes (Hospitalization, Disabling, Other)
  Sender: FDA-Public Use
  Company Number: US-009507513-1107USA01811

PATIENT

DRUGS (9)
  1. ALLEGRA [Concomitant]
     Indication: SEASONAL ALLERGY
  2. ELAVIL (MADE BY MERCK, MARKETED BY ZENECA) [Concomitant]
     Indication: INSOMNIA
     Route: 048
     Dates: start: 20051103
  3. FOSAMAX [Suspect]
     Indication: OSTEOPENIA
     Dosage: 70 MG, QW
     Route: 048
     Dates: start: 20060123, end: 20080527
  4. ZOLOFT [Concomitant]
     Indication: ANXIETY
     Dosage: 100 MG, UNK
     Dates: start: 20050131
  5. CALCIUM (UNSPECIFIED) [Concomitant]
     Indication: OSTEOPENIA
     Dosage: 1200 MG, QD
  6. FOSAMAX [Suspect]
     Dosage: 70 MG, UNK
     Route: 048
     Dates: start: 20080527, end: 20110218
  7. ZOLOFT [Concomitant]
     Indication: MENOPAUSE
  8. ZOCOR [Concomitant]
     Dosage: 40 MG, QD
     Route: 048
     Dates: start: 20070101
  9. VITAMIN D (UNSPECIFIED) [Concomitant]
     Indication: OSTEOPENIA
     Dosage: 1000 MG, QD

REACTIONS (12)
  - FEMUR FRACTURE [None]
  - TOOTH DISORDER [None]
  - BLOOD CHOLESTEROL INCREASED [None]
  - EPISTAXIS [None]
  - INSOMNIA [None]
  - CHOLELITHIASIS [None]
  - HAEMORRHOIDS [None]
  - CHOLECYSTITIS CHRONIC [None]
  - HEPATIC STEATOSIS [None]
  - HYPERLIPIDAEMIA [None]
  - ANXIETY [None]
  - DEPRESSION [None]
